FAERS Safety Report 10483640 (Version 1)
Quarter: 2014Q3

REPORT INFORMATION
  Report Type: Spontaneous
  Country: US (occurrence: None)
  Receive Date: 20140929
  Receipt Date: 20140929
  Transmission Date: 20150326
  Serious: Yes (Other)
  Sender: FDA-Public Use
  Company Number: None

PATIENT
  Age: 47 Year
  Sex: Female
  Weight: 73.03 kg

DRUGS (1)
  1. CIPROFLOXACIN HCL [Suspect]
     Active Substance: CIPROFLOXACIN HYDROCHLORIDE
     Indication: KIDNEY INFECTION
     Route: 048
     Dates: start: 20140722, end: 20140725

REACTIONS (11)
  - Arthralgia [None]
  - Tendon disorder [None]
  - Drug ineffective [None]
  - Walking aid user [None]
  - Abasia [None]
  - Contusion [None]
  - Joint swelling [None]
  - Skin disorder [None]
  - Diarrhoea [None]
  - Gait disturbance [None]
  - Tendon pain [None]

NARRATIVE: CASE EVENT DATE: 20140722
